FAERS Safety Report 19757406 (Version 2)
Quarter: 2022Q2

REPORT INFORMATION
  Report Type: Spontaneous
  Country: US (occurrence: None)
  Receive Date: 20210827
  Receipt Date: 20220419
  Transmission Date: 20220721
  Serious: Yes (Other)
  Sender: FDA-Public Use
  Company Number: 2021A695785

PATIENT
  Age: 29591 Day
  Sex: Female
  Weight: 57.2 kg

DRUGS (77)
  1. NEXIUM [Suspect]
     Active Substance: ESOMEPRAZOLE MAGNESIUM
     Indication: Gastrooesophageal reflux disease
     Route: 048
     Dates: start: 2000, end: 2019
  2. NEXIUM [Suspect]
     Active Substance: ESOMEPRAZOLE MAGNESIUM
     Indication: Gastrooesophageal reflux disease
     Route: 048
     Dates: start: 2001, end: 2019
  3. PRILOSEC [Suspect]
     Active Substance: OMEPRAZOLE MAGNESIUM
     Indication: Gastrooesophageal reflux disease
     Route: 048
     Dates: start: 2000, end: 2019
  4. PRILOSEC [Suspect]
     Active Substance: OMEPRAZOLE MAGNESIUM
     Indication: Gastrooesophageal reflux disease
     Route: 048
     Dates: start: 2000, end: 2019
  5. PRILOSEC [Suspect]
     Active Substance: OMEPRAZOLE MAGNESIUM
     Indication: Gastrooesophageal reflux disease
     Dosage: GENERIC
     Route: 065
     Dates: end: 2019
  6. PRILOSEC OTC [Suspect]
     Active Substance: OMEPRAZOLE MAGNESIUM
     Indication: Gastrooesophageal reflux disease
     Route: 048
     Dates: start: 2000, end: 2019
  7. PRILOSEC OTC [Suspect]
     Active Substance: OMEPRAZOLE MAGNESIUM
     Indication: Gastrooesophageal reflux disease
     Route: 048
     Dates: start: 2003, end: 2019
  8. PREVACID [Suspect]
     Active Substance: LANSOPRAZOLE
     Indication: Gastrooesophageal reflux disease
     Route: 065
     Dates: start: 2000, end: 2019
  9. PREVACID [Suspect]
     Active Substance: LANSOPRAZOLE
     Indication: Gastrooesophageal reflux disease
     Route: 065
     Dates: start: 2000, end: 2019
  10. ACETAMINOPHEN\HYDROCODONE BITARTRATE [Concomitant]
     Active Substance: ACETAMINOPHEN\HYDROCODONE BITARTRATE
  11. DIAZEPAM [Concomitant]
     Active Substance: DIAZEPAM
  12. POTASSIUM CHLORIDE [Concomitant]
     Active Substance: POTASSIUM CHLORIDE
  13. LIPITOR [Concomitant]
     Active Substance: ATORVASTATIN CALCIUM
     Indication: Blood cholesterol
     Dates: start: 2008, end: 2011
  14. HYDROCHLOROTHIAZIDE [Concomitant]
     Active Substance: HYDROCHLOROTHIAZIDE
     Indication: Renal disorder
     Dates: start: 2010, end: 2018
  15. CIPROFLOXACIN [Concomitant]
     Active Substance: CIPROFLOXACIN
     Indication: Infection
     Dates: start: 201006
  16. GLYBURIDE [Concomitant]
     Active Substance: GLYBURIDE
  17. LEVOTHYROXINE [Concomitant]
     Active Substance: LEVOTHYROXINE
  18. LOTRIMIN [Concomitant]
     Active Substance: CLOTRIMAZOLE
  19. LISINOPRIL [Concomitant]
     Active Substance: LISINOPRIL
     Indication: Blood pressure measurement
     Dates: start: 2011, end: 2019
  20. OXYCODONE HYDROCHLORIDE [Concomitant]
     Active Substance: OXYCODONE HYDROCHLORIDE
  21. OXYBUTYNIN [Concomitant]
     Active Substance: OXYBUTYNIN
  22. PHENAZOPYRIDINE [Concomitant]
     Active Substance: PHENAZOPYRIDINE
  23. BETAMETHASONE [Concomitant]
     Active Substance: BETAMETHASONE
  24. ESTRACE [Concomitant]
     Active Substance: ESTRADIOL
  25. SERTRALINE HYDROCHLORIDE [Concomitant]
     Active Substance: SERTRALINE HYDROCHLORIDE
  26. CHLORDIAZEPOXIDE [Concomitant]
     Active Substance: CHLORDIAZEPOXIDE
  27. BUTALBITAL-ASA-CAFFEINE [Concomitant]
  28. NITROFURANTOIN [Concomitant]
     Active Substance: NITROFURANTOIN
  29. AMOXICILLIN\CLAVULANATE POTASSIUM [Concomitant]
     Active Substance: AMOXICILLIN\CLAVULANATE POTASSIUM
  30. CLINDAMYCIN [Concomitant]
     Active Substance: CLINDAMYCIN
  31. METOPROLOL TARTRATE [Concomitant]
     Active Substance: METOPROLOL TARTRATE
  32. NEOMYCIN/POLYMYXIN B/TRIAMCINOLONE [Concomitant]
  33. METFORMIN HYDROCHLORIDE [Concomitant]
     Active Substance: METFORMIN HYDROCHLORIDE
  34. CLONIDINE [Concomitant]
     Active Substance: CLONIDINE
  35. ONDANSETRON HYDROCHLORIDE [Concomitant]
     Active Substance: ONDANSETRON HYDROCHLORIDE
  36. METOCLOPRAMIDE [Concomitant]
     Active Substance: METOCLOPRAMIDE
  37. SULFAMETHOXAZOLE\TRIMETHOPRIM [Concomitant]
     Active Substance: SULFAMETHOXAZOLE\TRIMETHOPRIM
  38. BUSPIRONE [Concomitant]
     Active Substance: BUSPIRONE HYDROCHLORIDE
  39. POLY-TUSSIN AC [Concomitant]
     Active Substance: BROMPHENIRAMINE MALEATE\CODEINE PHOSPHATE\PHENYLEPHRINE HYDROCHLORIDE
  40. DOXYCYCLINE HYCLATE [Concomitant]
     Active Substance: DOXYCYCLINE HYCLATE
     Indication: Infection
     Dates: start: 201607
  41. FLUTICASONE PROPIONATE [Concomitant]
     Active Substance: FLUTICASONE PROPIONATE
  42. BENZONATATE [Concomitant]
     Active Substance: BENZONATATE
  43. LOSARTAN POTASSIUM [Concomitant]
     Active Substance: LOSARTAN POTASSIUM
     Indication: Blood pressure measurement
     Dates: start: 201609
  44. RESTASIS [Concomitant]
     Active Substance: CYCLOSPORINE
  45. BEPREVE [Concomitant]
     Active Substance: BEPOTASTINE BESILATE
  46. ACULAR [Concomitant]
     Active Substance: KETOROLAC TROMETHAMINE
  47. METANX [Concomitant]
     Active Substance: LEVOMEFOLATE CALCIUM\METHYLCOBALAMIN\PYRIDOXAL PHOSPHATE ANHYDROUS
  48. CONTOUR [Concomitant]
  49. FAMOTIDINE [Concomitant]
     Active Substance: FAMOTIDINE
     Dates: start: 2016, end: 2018
  50. LACTULOSE [Concomitant]
     Active Substance: LACTULOSE
  51. LIDOCAINE [Concomitant]
     Active Substance: LIDOCAINE
  52. OSELTAMIVIR PHOSPHATE [Concomitant]
     Active Substance: OSELTAMIVIR PHOSPHATE
  53. MAGNESIUM OXIDE [Concomitant]
     Active Substance: MAGNESIUM OXIDE
  54. DICLOFENAC [Concomitant]
     Active Substance: DICLOFENAC
     Indication: Pain
     Dates: start: 201903
  55. PYRIDIUM [Concomitant]
     Active Substance: PHENAZOPYRIDINE
  56. TRAMADOL [Concomitant]
     Active Substance: TRAMADOL
     Indication: Pain
     Dates: start: 201905
  57. AMOXICILLIN [Concomitant]
     Active Substance: AMOXICILLIN
     Indication: Infection
     Dates: start: 201012
  58. AZITHROMYCIN [Concomitant]
     Active Substance: AZITHROMYCIN
     Indication: Infection
     Dates: start: 2014, end: 2019
  59. ZITHROMAX [Concomitant]
     Active Substance: AZITHROMYCIN DIHYDRATE
     Indication: Infection
     Dates: start: 2014, end: 2019
  60. ERYTHROMYCIN [Concomitant]
     Active Substance: ERYTHROMYCIN
     Indication: Infection
     Dates: start: 200612
  61. NEOMYCIN [Concomitant]
     Active Substance: NEOMYCIN
     Indication: Infection
     Dates: start: 201309
  62. ACETARSOL/NYSTATIN/NEOMYCIN/POLYMYXIN B [Concomitant]
     Indication: Infection
     Dates: start: 200906
  63. TRIMETHOPRIM [Concomitant]
     Active Substance: TRIMETHOPRIM
     Indication: Infection
     Dates: start: 201506
  64. BENAZEPRIL [Concomitant]
     Active Substance: BENAZEPRIL HYDROCHLORIDE
     Indication: Blood pressure measurement
     Dates: start: 201806
  65. QUINAPRIL [Concomitant]
     Active Substance: QUINAPRIL
     Indication: Blood pressure measurement
     Dates: start: 200504
  66. VALSARTAN [Concomitant]
     Active Substance: VALSARTAN
     Indication: Blood pressure measurement
     Dates: start: 201711
  67. FUROSEMIDE [Concomitant]
     Active Substance: FUROSEMIDE
     Indication: Renal disorder
     Dates: start: 201712
  68. TRIAMTERENE [Concomitant]
     Active Substance: TRIAMTERENE
     Indication: Heart disease congenital
     Dates: start: 200505
  69. ATORVASTATIN [Concomitant]
     Active Substance: ATORVASTATIN
     Indication: Blood cholesterol
     Dates: start: 201203
  70. PRAVASTATIN [Concomitant]
     Active Substance: PRAVASTATIN
     Indication: Blood cholesterol
     Dates: start: 201702
  71. LEVAQUIN [Concomitant]
     Active Substance: LEVOFLOXACIN
     Indication: Infection
     Dates: start: 2014, end: 2018
  72. ASPIRIN [Concomitant]
     Active Substance: ASPIRIN
     Indication: Cardiac failure acute
  73. ASPIRIN [Concomitant]
     Active Substance: ASPIRIN
     Indication: Pain
  74. ACETAMINOPHEN [Concomitant]
     Active Substance: ACETAMINOPHEN
     Indication: Pain
  75. TAGAMET [Concomitant]
     Active Substance: CIMETIDINE
     Dates: start: 2016, end: 2018
  76. ZANTAC [Concomitant]
     Active Substance: RANITIDINE HYDROCHLORIDE
     Dates: start: 2016, end: 2018
  77. PEPCID [Concomitant]
     Active Substance: FAMOTIDINE
     Dates: start: 2017, end: 2018

REACTIONS (1)
  - Chronic kidney disease [Not Recovered/Not Resolved]

NARRATIVE: CASE EVENT DATE: 20191218
